FAERS Safety Report 21380019 (Version 1)
Quarter: 2022Q3

REPORT INFORMATION
  Report Type: Spontaneous
  Country: ES (occurrence: ES)
  Receive Date: 20220927
  Receipt Date: 20220927
  Transmission Date: 20221026
  Serious: Yes (Other)
  Sender: FDA-Public Use
  Company Number: None

PATIENT

DRUGS (12)
  1. BUPROPION HYDROCHLORIDE [Suspect]
     Active Substance: BUPROPION HYDROCHLORIDE
     Indication: Tobacco abuse
     Dosage: 300 MG DE
     Route: 048
     Dates: start: 20220809
  2. OMEPRAZOL SANDOZ [Concomitant]
     Indication: Amenorrhoea
     Dosage: 20 MG; A-DE
     Route: 048
     Dates: start: 20210309
  3. LORMETAZEPAM [Concomitant]
     Active Substance: LORMETAZEPAM
     Indication: Bronchitis
     Dosage: 20 MG;2.0 MG C/24 H NOC
     Route: 048
     Dates: start: 20181026
  4. CHOLECALCIFEROL [Concomitant]
     Active Substance: CHOLECALCIFEROL
     Indication: Vitamin D deficiency
     Dosage: 25000.0 IU;EVERY 21 DAYS
     Route: 048
     Dates: start: 20190806
  5. GELOTRADOL [Concomitant]
     Indication: Arthrodesis
     Dosage: 50 MG;C/12H
     Route: 048
     Dates: start: 20181210
  6. ACETAMINOPHEN [Concomitant]
     Active Substance: ACETAMINOPHEN
     Indication: Postoperative care
     Dosage: 1 G;DECOCE
     Route: 048
     Dates: start: 20180530
  7. DIAZEPAM [Concomitant]
     Active Substance: DIAZEPAM
     Indication: Adjustment disorder with anxiety
     Dosage: 10 MG;C/24 H
     Route: 048
     Dates: start: 20160520
  8. OTILONIUM BROMIDE [Concomitant]
     Active Substance: OTILONIUM BROMIDE
     Indication: Abdominal pain
     Dosage: 40.0 MG A-DECE
     Route: 048
     Dates: start: 20210602
  9. ATORVASTATIN [Concomitant]
     Active Substance: ATORVASTATIN
     Indication: Tobacco abuse
     Dosage: 10 MG;10.0 MG CE
     Route: 048
     Dates: start: 20161102
  10. FLUTICASONE PROPIONATE [Concomitant]
     Active Substance: FLUTICASONE PROPIONATE
     Indication: Product used for unknown indication
     Dosage: 1.0 DF, QD;1.0 APPLY W/24 H
     Route: 061
     Dates: start: 20220225
  11. GABAPENTIN [Concomitant]
     Active Substance: GABAPENTIN
     Indication: Postoperative care
     Dosage: 100 MG;100.0 MG DECOCE
     Route: 048
     Dates: start: 20180530
  12. LEVOTHYROXINE SODIUM [Concomitant]
     Active Substance: LEVOTHYROXINE SODIUM
     Indication: Hypothyroidism
     Dosage: 88 UG;88.0 MCG A-DE
     Route: 048
     Dates: start: 20190315

REACTIONS (1)
  - Self-injurious ideation [Recovering/Resolving]

NARRATIVE: CASE EVENT DATE: 20220904
